FAERS Safety Report 25089890 (Version 1)
Quarter: 2025Q1

REPORT INFORMATION
  Report Type: Spontaneous
  Country: US (occurrence: None)
  Receive Date: 20250317
  Receipt Date: 20250317
  Transmission Date: 20250409
  Serious: Yes (Other)
  Sender: FDA-CTU
  Company Number: None

PATIENT
  Age: 29 Year
  Sex: Female
  Weight: 75.15 kg

DRUGS (5)
  1. QELBREE [Suspect]
     Active Substance: VILOXAZINE HYDROCHLORIDE
     Indication: Attention deficit hyperactivity disorder
  2. Venlfaxaine [Concomitant]
  3. BUPROPION [Concomitant]
     Active Substance: BUPROPION
  4. QELBREE [Concomitant]
     Active Substance: VILOXAZINE HYDROCHLORIDE
  5. NEXPLANON [Concomitant]
     Active Substance: ETONOGESTREL

REACTIONS (8)
  - Migraine [None]
  - Wrong technique in product usage process [None]
  - Pain [None]
  - Nausea [None]
  - Vomiting [None]
  - Feeling of body temperature change [None]
  - Chills [None]
  - Impaired work ability [None]

NARRATIVE: CASE EVENT DATE: 20250311
